FAERS Safety Report 5977862-X (Version None)
Quarter: 2008Q4

REPORT INFORMATION
  Report Type: 
  Country: None (occurrence: None)
  Receive Date: 20081203
  Receipt Date: 20081121
  Transmission Date: 20090506
  Serious: Yes (Other)
  Sender: FDA-Public Use
  Company Number: ES-JNJFOC-20081200517

PATIENT
  Age: 87 Year
  Sex: Male

DRUGS (2)
  1. ZALDIAR [Suspect]
     Indication: PARAESTHESIA
     Route: 048
  2. TRIPTIZOL [Interacting]
     Indication: PARAESTHESIA
     Route: 048

REACTIONS (3)
  - CONFUSIONAL STATE [None]
  - DRUG INTERACTION [None]
  - DYSKINESIA [None]
